FAERS Safety Report 7599177-9 (Version None)
Quarter: 2011Q3

REPORT INFORMATION
  Report Type: 
  Country: None (occurrence: None)
  Receive Date: 20110711
  Receipt Date: 20110627
  Transmission Date: 20111222
  Serious: Yes (Hospitalization, Disabling, Other)
  Sender: FDA-Public Use
  Company Number: US-BAYER-201010953NA

PATIENT
  Age: 18 Year
  Sex: Female
  Weight: 43.991 kg

DRUGS (1)
  1. YAZ [Suspect]
     Indication: ORAL CONTRACEPTION
     Dosage: 1 TAB / DAY
     Route: 048
     Dates: start: 20080620, end: 20090101

REACTIONS (9)
  - CHOLECYSTECTOMY [None]
  - MALAISE [None]
  - FATIGUE [None]
  - FOOD INTOLERANCE [None]
  - ABDOMINAL PAIN [None]
  - CHEST PAIN [None]
  - CHOLECYSTITIS CHRONIC [None]
  - INJURY [None]
  - PAIN [None]
